FAERS Safety Report 4493383-8 (Version None)
Quarter: 2004Q4

REPORT INFORMATION
  Report Type: 
  Country: None (occurrence: None)
  Receive Date: 20041102
  Receipt Date: 20041015
  Transmission Date: 20050328
  Serious: Yes (Other)
  Sender: FDA-Public Use
  Company Number: 21079

PATIENT
  Sex: Male

DRUGS (4)
  1. NIASPAN [Suspect]
     Indication: DYSLIPIDAEMIA
     Dosage: 2000 MG QHS PO
     Route: 048
  2. ACIPHEX [Concomitant]
  3. WELLBUTRIN [Concomitant]
  4. UNKNOWN STATIN MEDICATION [Concomitant]

REACTIONS (5)
  - COUGH [None]
  - CYANOSIS [None]
  - DERMATITIS EXFOLIATIVE [None]
  - DRUG HYPERSENSITIVITY [None]
  - SNEEZING [None]
